FAERS Safety Report 4556612-8 (Version None)
Quarter: 2005Q1

REPORT INFORMATION
  Report Type: 
  Country: None (occurrence: None)
  Receive Date: 20050114
  Receipt Date: 20050107
  Transmission Date: 20050727
  Serious: Yes (Hospitalization, Other)
  Sender: FDA-Public Use
  Company Number: 2005007641

PATIENT
  Age: 68 Year
  Sex: Female
  Weight: 107.5025 kg

DRUGS (7)
  1. LIPITOR [Suspect]
     Indication: BLOOD CHOLESTEROL INCREASED
     Dosage: 20 MG (20 MG, 1 IN 1 D), ORAL
     Route: 048
     Dates: start: 20040301
  2. CELEBREX [Suspect]
     Indication: ARTHRITIS
     Dosage: 200 MG (200 MG, 1 IN 1 D), ORAL
     Route: 048
     Dates: start: 20030101
  3. FOSINOPRIL SODIUM [Concomitant]
  4. OXYBUTYNIN CHLORIDE [Concomitant]
  5. RISEDRONATE SODIUM (RISEDRONATE SODIUM) [Concomitant]
  6. ZAFIRLUKAST (ZAFIRLUKAST) [Concomitant]
  7. ESOMEPRAZOLE (ESOMEPRAZOLE) [Suspect]

REACTIONS (2)
  - CHEST PAIN [None]
  - VASCULAR OCCLUSION [None]
